FAERS Safety Report 16028744 (Version 4)
Quarter: 2019Q1

REPORT INFORMATION
  Report Type: Report from Study
  Country: US (occurrence: US)
  Receive Date: 20190304
  Receipt Date: 20190328
  Transmission Date: 20190418
  Serious: Yes (Other)
  Sender: FDA-Public Use
  Company Number: PHEH2019US008626

PATIENT
  Sex: Female

DRUGS (4)
  1. COSENTYX [Suspect]
     Active Substance: SECUKINUMAB
     Dosage: 300 MG (2 PENS), Q4W
     Route: 058
  2. COSENTYX [Suspect]
     Active Substance: SECUKINUMAB
     Indication: PSORIATIC ARTHROPATHY
     Dosage: 300 MG, QW
     Route: 058
  3. COSENTYX [Suspect]
     Active Substance: SECUKINUMAB
     Indication: PSORIASIS
     Dosage: 300 MG, QW
     Route: 058
     Dates: start: 201902
  4. COSENTYX [Suspect]
     Active Substance: SECUKINUMAB
     Dosage: 300 MG, Q2W
     Route: 058

REACTIONS (14)
  - Macule [Not Recovered/Not Resolved]
  - Dyspnoea [Unknown]
  - Arthralgia [Unknown]
  - Skin lesion [Unknown]
  - Pain in extremity [Unknown]
  - Nausea [Unknown]
  - Inappropriate schedule of product administration [Unknown]
  - Cellulitis [Unknown]
  - Chest pain [Unknown]
  - Disturbance in attention [Unknown]
  - Product dispensing error [Unknown]
  - Headache [Recovered/Resolved]
  - Renal disorder [Unknown]
  - Dizziness [Recovering/Resolving]
